FAERS Safety Report 4565201-0 (Version None)
Quarter: 2005Q1

REPORT INFORMATION
  Report Type: 
  Country: None (occurrence: None)
  Receive Date: 20050127
  Receipt Date: 20050127
  Transmission Date: 20050727
  Serious: Yes (Other)
  Sender: FDA-Public Use
  Company Number: None

PATIENT
  Sex: Female
  Weight: 94.8018 kg

DRUGS (2)
  1. CARDIOLITE [Suspect]
     Indication: ELECTROCARDIOGRAM ABNORMAL
     Dosage: 13.4MCI / 12:45PM ONE TIME / IV
     Route: 042
  2. SODIUM CHLORIDE 0.9% [Concomitant]

REACTIONS (1)
  - HYPERSENSITIVITY [None]
